FAERS Safety Report 9523174 (Version 2)
Quarter: 2013Q4

REPORT INFORMATION
  Report Type: Spontaneous
  Country: US (occurrence: US)
  Receive Date: 20130913
  Receipt Date: 20131009
  Transmission Date: 20140711
  Serious: Yes (Death)
  Sender: FDA-Public Use
  Company Number: US-GLAXOSMITHKLINE-A1041372A

PATIENT
  Age: 65 Year
  Sex: Male

DRUGS (5)
  1. VOTRIENT [Suspect]
     Indication: RENAL CANCER
     Dosage: 400MG TWICE PER DAY
     Route: 048
     Dates: start: 20130729
  2. ASPIRIN [Concomitant]
  3. ALTACE [Concomitant]
  4. PLAVIX [Concomitant]
  5. ZOCOR [Concomitant]

REACTIONS (2)
  - Disease progression [Fatal]
  - Drug ineffective [Unknown]
